FAERS Safety Report 4576348-7 (Version None)
Quarter: 2005Q1

REPORT INFORMATION
  Report Type: 
  Country: None (occurrence: None)
  Receive Date: 20050119
  Receipt Date: 20040714
  Transmission Date: 20050727
  Serious: Yes (Hospitalization)
  Sender: FDA-Public Use
  Company Number: A03200402294

PATIENT
  Age: 86 Year
  Sex: Female
  Weight: 65.7716 kg

DRUGS (9)
  1. PLAVIX [Suspect]
     Indication: MYOCARDIAL INFARCTION
     Dosage: 75 MG QD - ORAL
     Route: 048
     Dates: start: 20011101, end: 20040628
  2. PLAVIX [Suspect]
     Indication: STENT PLACEMENT
     Dosage: 75 MG QD - ORAL
     Route: 048
     Dates: start: 20011101, end: 20040628
  3. ASPIRIN [Suspect]
     Indication: MYOCARDIAL INFARCTION
     Dosage: 81 MG QD - ORAL
     Route: 048
     Dates: start: 20011101, end: 20040628
  4. ASPIRIN [Suspect]
     Indication: STENT PLACEMENT
     Dosage: 81 MG QD - ORAL
     Route: 048
     Dates: start: 20011101, end: 20040628
  5. SIMVASTATIN [Concomitant]
  6. METOPROL SUCCINATE [Concomitant]
  7. EZETIMIBE [Concomitant]
  8. HYDROCHLOROTHIAZIDE [Concomitant]
  9. LISINOPRIL [Concomitant]

REACTIONS (3)
  - DIZZINESS [None]
  - GASTROINTESTINAL ULCER HAEMORRHAGE [None]
  - MELAENA [None]
